FAERS Safety Report 5197545-6 (Version None)
Quarter: 2007Q1

REPORT INFORMATION
  Report Type: 
  Country: None (occurrence: None)
  Receive Date: 20070103
  Receipt Date: 20061213
  Transmission Date: 20070707
  Serious: Yes (Death, Life-Threatening)
  Sender: FDA-Public Use
  Company Number: US-BRISTOL-MYERS SQUIBB COMPANY-13622493

PATIENT
  Age: 58 Year
  Sex: Male

DRUGS (17)
  1. SINEMET [Suspect]
     Route: 048
  2. HALOPERIDOL [Suspect]
     Indication: AGITATION
     Route: 048
     Dates: start: 20050120
  3. RISPERDAL [Suspect]
     Indication: SCHIZOPHRENIA
     Route: 048
     Dates: start: 20050117
  4. ATIVAN [Concomitant]
  5. COUMADIN [Concomitant]
  6. DEMADEX [Concomitant]
  7. HUMULIN 70/30 [Concomitant]
  8. K-DUR 10 [Concomitant]
  9. LEXAPRO [Concomitant]
  10. LOVENOX [Concomitant]
  11. PLAVIX [Concomitant]
  12. WELLBUTRIN SR [Concomitant]
  13. ZOCOR [Concomitant]
  14. CAPTOPRIL [Concomitant]
  15. DIGOXIN [Concomitant]
  16. DILTIAZEM HCL [Concomitant]
  17. METOPROLOL TARTRATE [Concomitant]

REACTIONS (10)
  - ASTHENIA [None]
  - ATRIAL FIBRILLATION [None]
  - CARDIO-RESPIRATORY ARREST [None]
  - CEREBRAL ATROPHY [None]
  - CEREBROVASCULAR ACCIDENT [None]
  - CONDITION AGGRAVATED [None]
  - FACIAL PALSY [None]
  - GASTROINTESTINAL HAEMORRHAGE [None]
  - LETHARGY [None]
  - NEUROLEPTIC MALIGNANT SYNDROME [None]
